FAERS Safety Report 24027554 (Version 1)
Quarter: 2024Q2

REPORT INFORMATION
  Report Type: Spontaneous
  Country: US (occurrence: US)
  Receive Date: 20240628
  Receipt Date: 20240628
  Transmission Date: 20240716
  Serious: Yes (Hospitalization, Other)
  Sender: FDA-Public Use
  Company Number: US-DRL-USA-LIT/USA/24/0009044

PATIENT
  Age: 19 Year
  Sex: Male

DRUGS (1)
  1. HEPARIN [Suspect]
     Active Substance: HEPARIN SODIUM
     Indication: Thrombosis

REACTIONS (5)
  - Heparin-induced thrombocytopenia [Unknown]
  - Ventricular tachycardia [Unknown]
  - Condition aggravated [Unknown]
  - Arrhythmia [Unknown]
  - Drug ineffective for unapproved indication [Unknown]
